FAERS Safety Report 4616756-9 (Version None)
Quarter: 2005Q1

REPORT INFORMATION
  Report Type: 
  Country: None (occurrence: None)
  Receive Date: 20050321
  Receipt Date: 20030703
  Transmission Date: 20050727
  Serious: No
  Sender: FDA-Public Use
  Company Number: 5959

PATIENT
  Age: 82 Year
  Sex: Female

DRUGS (3)
  1. AMIODARONE HCL [Suspect]
     Indication: ATRIAL FIBRILLATION
     Dosage: 100 MG PO
     Route: 048
     Dates: start: 20030321, end: 20030606
  2. ACETYLSALICYLIC ACID SRT [Concomitant]
  3. FRUSEMIDE [Concomitant]

REACTIONS (1)
  - HYPOTHYROIDISM [None]
